FAERS Safety Report 5104381-5 (Version None)
Quarter: 2006Q3

REPORT INFORMATION
  Report Type: 
  Country: None (occurrence: None)
  Receive Date: 20060914
  Receipt Date: 20060823
  Transmission Date: 20061208
  Serious: Yes (Other)
  Sender: FDA-Public Use
  Company Number: US-AMGEN-US191064

PATIENT
  Sex: Male

DRUGS (5)
  1. ENBREL [Suspect]
     Indication: RHEUMATOID ARTHRITIS
     Route: 058
     Dates: start: 20060101, end: 20060601
  2. PLAQUENIL [Concomitant]
     Dates: start: 20041008
  3. METHOTREXATE [Concomitant]
     Dates: start: 20050926, end: 20060803
  4. ISONIAZID [Concomitant]
     Dates: start: 20060803, end: 20060817
  5. PYRIDOXINE HCL [Concomitant]
     Dates: start: 20060803, end: 20060817

REACTIONS (5)
  - ALANINE AMINOTRANSFERASE INCREASED [None]
  - CONDITION AGGRAVATED [None]
  - HEPATITIS B [None]
  - HEPATITIS B SURFACE ANTIGEN POSITIVE [None]
  - TRAUMATIC AMPUTATION [None]
